FAERS Safety Report 10278333 (Version 2)
Quarter: 2014Q3

REPORT INFORMATION
  Report Type: Spontaneous
  Country: DE (occurrence: DE)
  Receive Date: 20140704
  Receipt Date: 20140704
  Transmission Date: 20150326
  Serious: Yes (Disabling)
  Sender: FDA-Public Use
  Company Number: CHPA2014DE008896

PATIENT
  Sex: Male

DRUGS (4)
  1. VOLTAREN SCHMERZGEL [Suspect]
     Active Substance: DICLOFENAC DIETHYLAMINE
     Indication: OSTEOARTHRITIS
  2. VOLTAREN SCHMERZGEL FORTE [Suspect]
     Active Substance: DICLOFENAC DIETHYLAMINE
     Indication: OSTEOARTHRITIS
     Route: 061
  3. VOLTAREN SCHMERZGEL [Suspect]
     Active Substance: DICLOFENAC DIETHYLAMINE
     Indication: BACK PAIN
     Route: 061
  4. VOLTAREN RESINAT [Suspect]
     Active Substance: DICLOFENAC
     Indication: POLYNEUROPATHY
     Dosage: 2 DF, UNK
     Route: 048

REACTIONS (3)
  - Drug ineffective [Unknown]
  - Blindness unilateral [Unknown]
  - Macular degeneration [Unknown]
